FAERS Safety Report 6619073-0 (Version None)
Quarter: 2010Q1

REPORT INFORMATION
  Report Type: 
  Country: None (occurrence: None)
  Receive Date: 20100308
  Receipt Date: 20100125
  Transmission Date: 20100710
  Serious: No
  Sender: FDA-Public Use
  Company Number: US-ALLERGAN-1000912US

PATIENT
  Sex: Male

DRUGS (1)
  1. ACZONE [Suspect]
     Indication: DRUG USE FOR UNKNOWN INDICATION
     Dosage: UNK
     Route: 061

REACTIONS (2)
  - ABDOMINAL PAIN [None]
  - DIARRHOEA [None]
